FAERS Safety Report 5208899-6 (Version None)
Quarter: 2007Q1

REPORT INFORMATION
  Report Type: 
  Country: None (occurrence: None)
  Receive Date: 20070116
  Receipt Date: 20070108
  Transmission Date: 20070707
  Serious: Yes (Hospitalization)
  Sender: FDA-Public Use
  Company Number: FR-AVENTIS-200710054FR

PATIENT
  Age: 46 Year
  Sex: Male
  Weight: 44 kg

DRUGS (6)
  1. FLAGYL [Suspect]
     Indication: LYMPHANGITIS
     Route: 042
     Dates: start: 20060324
  2. CLAFORAN [Suspect]
     Indication: LYMPHANGITIS
     Route: 042
     Dates: start: 20060324
  3. CYMEVAN                            /00784201/ [Suspect]
     Indication: CYTOMEGALOVIRUS INFECTION
     Route: 042
     Dates: start: 20060330, end: 20060420
  4. PENTASA [Suspect]
     Route: 048
  5. KABIVEN [Suspect]
     Route: 042
     Dates: start: 20060313, end: 20060420
  6. SOLU-MEDROL [Suspect]
     Route: 042
     Dates: start: 20060309

REACTIONS (2)
  - HYPOKALAEMIA [None]
  - HYPONATRAEMIA [None]
